FAERS Safety Report 25742823 (Version 1)
Quarter: 2025Q3

REPORT INFORMATION
  Report Type: Report from Study
  Country: CA (occurrence: CA)
  Receive Date: 20250830
  Receipt Date: 20250830
  Transmission Date: 20251021
  Serious: Yes (Other)
  Sender: CSL BEHRING
  Company Number: CA-BEH-2024170446

PATIENT
  Age: 37 Year
  Sex: Female
  Weight: 118 kg

DRUGS (18)
  1. BERINERT [Suspect]
     Active Substance: HUMAN C1-ESTERASE INHIBITOR
     Indication: Hereditary angioedema with normal C1 esterase inhibitor
     Route: 058
     Dates: start: 20210504
  2. BERINERT [Suspect]
     Active Substance: HUMAN C1-ESTERASE INHIBITOR
     Indication: Prophylaxis
  3. BERINERT [Suspect]
     Active Substance: HUMAN C1-ESTERASE INHIBITOR
     Indication: Hereditary angioedema with normal C1 esterase inhibitor
     Route: 058
     Dates: start: 20210504
  4. BERINERT [Suspect]
     Active Substance: HUMAN C1-ESTERASE INHIBITOR
     Indication: Prophylaxis
  5. BERINERT [Suspect]
     Active Substance: HUMAN C1-ESTERASE INHIBITOR
     Indication: Hereditary angioedema
     Route: 042
     Dates: start: 20181221
  6. BERINERT [Suspect]
     Active Substance: HUMAN C1-ESTERASE INHIBITOR
     Indication: Hereditary angioedema
     Route: 042
     Dates: start: 20181221
  7. CANNABIS SATIVA SUBSP. INDICA TOP [Concomitant]
     Active Substance: CANNABIS SATIVA SUBSP. INDICA TOP
  8. TRAZODONE [Concomitant]
     Active Substance: TRAZODONE HYDROCHLORIDE
     Dosage: 100 MG, HS
  9. RANITIDINE [Concomitant]
     Active Substance: RANITIDINE
     Dosage: 150 MG, BID
  10. QUETIAPINE [Concomitant]
     Active Substance: QUETIAPINE
     Dosage: 25 MG, HS
  11. PANTOPRAZOLE [Concomitant]
     Active Substance: PANTOPRAZOLE
     Dosage: 40 MG, BID
  12. BUPROPION [Concomitant]
     Active Substance: BUPROPION
     Dosage: 300 MG, QD
  13. HYDROMORPHONE [Concomitant]
     Active Substance: HYDROMORPHONE
     Dosage: 4 MG, BID
  14. HYDROMORPHONE [Concomitant]
     Active Substance: HYDROMORPHONE
     Dosage: 6 MG, BID
  15. ONDANSETRON [Concomitant]
     Active Substance: ONDANSETRON
  16. KETOROLAC [Concomitant]
     Active Substance: KETOROLAC TROMETHAMINE
  17. CLONAZEPAM [Concomitant]
     Active Substance: CLONAZEPAM
  18. FIRAZYR [Concomitant]
     Active Substance: ICATIBANT ACETATE

REACTIONS (11)
  - Haemorrhage [Unknown]
  - Malaise [Unknown]
  - Upper limb fracture [Unknown]
  - Insomnia [Unknown]
  - Pain [Unknown]
  - Discomfort [Unknown]
  - Fall [Unknown]
  - Mental disorder [Unknown]
  - Unevaluable event [Unknown]
  - Discomfort [Unknown]
  - Product dose omission issue [Unknown]

NARRATIVE: CASE EVENT DATE: 20240604
